FAERS Safety Report 11490379 (Version 1)
Quarter: 2015Q3

REPORT INFORMATION
  Report Type: Spontaneous
  Country: IT (occurrence: IT)
  Receive Date: 20150910
  Receipt Date: 20150910
  Transmission Date: 20151125
  Serious: Yes (Hospitalization)
  Sender: FDA-Public Use
  Company Number: IT-SA-2015SA134462

PATIENT
  Age: 77 Year
  Sex: Female

DRUGS (7)
  1. PEPTAZOL [Concomitant]
     Active Substance: PANTOPRAZOLE SODIUM
     Route: 048
  2. CARDIOASPIRIN [Concomitant]
     Active Substance: ASPIRIN
     Dosage: STRENGTH: 100 MG
     Route: 048
  3. TIMOLOL. [Concomitant]
     Active Substance: TIMOLOL
     Dosage: EYEWASH SOLUTION
     Route: 047
  4. CORDARONE [Concomitant]
     Active Substance: AMIODARONE HYDROCHLORIDE
     Dosage: STRENGTH: 200 MG?FREQUENCY: 4 TIMES A WEEK
     Route: 048
  5. PROVISACOR [Concomitant]
     Active Substance: ROSUVASTATIN
     Dosage: DOSE:0.5 UNIT(S)
     Route: 048
  6. LASIX [Suspect]
     Active Substance: FUROSEMIDE
     Indication: ANURIA
     Route: 048
     Dates: start: 20150715, end: 20150801
  7. REAPTAN [Concomitant]
     Active Substance: AMLODIPINE BESYLATE
     Route: 048

REACTIONS (2)
  - Hyponatraemia [Unknown]
  - Polydipsia psychogenic [Unknown]

NARRATIVE: CASE EVENT DATE: 20150801
